FAERS Safety Report 11022782 (Version 1)
Quarter: 2015Q2

REPORT INFORMATION
  Report Type: Spontaneous
  Country: US (occurrence: US)
  Receive Date: 20150413
  Receipt Date: 20150413
  Transmission Date: 20150821
  Serious: Yes (Life-Threatening, Hospitalization, Other)
  Sender: FDA-Public Use
  Company Number: US-BAYER-2015-127812

PATIENT
  Age: 35 Year
  Sex: Female

DRUGS (1)
  1. ACETYLSALICYLIC ACID (} 100 MG) [Suspect]
     Active Substance: ASPIRIN
     Dosage: 474 DF, ONCE
     Route: 048

REACTIONS (4)
  - Bezoar [None]
  - Renal failure [None]
  - Toxicity to various agents [None]
  - Intentional overdose [None]
